FAERS Safety Report 11969993 (Version 3)
Quarter: 2016Q1

REPORT INFORMATION
  Report Type: Report from Study
  Country: IT (occurrence: IT)
  Receive Date: 20160128
  Receipt Date: 20160316
  Transmission Date: 20160526
  Serious: Yes (Other)
  Sender: FDA-Public Use
  Company Number: PHHY2013IT175975

PATIENT
  Age: 22 Month
  Sex: Female

DRUGS (4)
  1. AFINITOR [Suspect]
     Active Substance: EVEROLIMUS
     Dosage: 2.5 MG, QD (5.8 MG/M2/ DAY)
     Route: 048
  2. AFINITOR [Suspect]
     Active Substance: EVEROLIMUS
     Dosage: 1.875 MG, QD
     Route: 048
  3. AFINITOR [Suspect]
     Active Substance: EVEROLIMUS
     Dosage: 1.2 MG, QD
     Route: 048
  4. AFINITOR [Suspect]
     Active Substance: EVEROLIMUS
     Indication: ASTROCYTOMA, LOW GRADE
     Dosage: 1.875 MG, (4.3 MG/M2/ DAY)
     Route: 048
     Dates: start: 20120620

REACTIONS (9)
  - Hand-foot-and-mouth disease [Unknown]
  - Coxsackie viral infection [Unknown]
  - Viral infection [Unknown]
  - Hyperpyrexia [Unknown]
  - Blood creatine phosphokinase increased [Unknown]
  - Pericardial effusion [Recovered/Resolved]
  - Bacteraemia [Unknown]
  - Hypercholesterolaemia [Unknown]
  - Hypertriglyceridaemia [Unknown]

NARRATIVE: CASE EVENT DATE: 20131206
